FAERS Safety Report 7860921-4 (Version None)
Quarter: 2011Q4

REPORT INFORMATION
  Report Type: 
  Country: None (occurrence: None)
  Receive Date: 20111027
  Receipt Date: 20111018
  Transmission Date: 20120403
  Serious: Yes (Hospitalization)
  Sender: FDA-Public Use
  Company Number: US-MERCK-1106USA04016

PATIENT
  Age: 63 Year
  Sex: Female

DRUGS (7)
  1. FOSAMAX PLUS D [Suspect]
     Indication: OSTEOPOROSIS
     Route: 048
     Dates: start: 20050808, end: 20080620
  2. VITAMIN D (UNSPECIFIED) [Concomitant]
     Route: 065
     Dates: start: 20070101
  3. FOSAMAX [Suspect]
     Indication: OSTEOPOROSIS
     Route: 048
     Dates: start: 20020610, end: 20040302
  4. FOSAMAX [Suspect]
     Route: 048
     Dates: start: 20080520, end: 20101213
  5. CALCIUM (UNSPECIFIED) [Concomitant]
     Route: 065
     Dates: start: 20070101
  6. OMEGA-3 MARINE TRIGLYCERIDES [Concomitant]
     Route: 065
     Dates: start: 20070101
  7. FOSAMAX [Suspect]
     Route: 048
     Dates: start: 20080616, end: 20101213

REACTIONS (16)
  - HYPERMETROPIA [None]
  - ONYCHOMYCOSIS [None]
  - FALL [None]
  - LIMB INJURY [None]
  - LUMBAR SPINAL STENOSIS [None]
  - FEMUR FRACTURE [None]
  - HAEMORRHAGIC ANAEMIA [None]
  - HYPERLIPIDAEMIA [None]
  - BONE DISORDER [None]
  - INTERVERTEBRAL DISC DEGENERATION [None]
  - GASTROINTESTINAL DISORDER [None]
  - CATARACT NUCLEAR [None]
  - BACK PAIN [None]
  - PARONYCHIA [None]
  - POLYP [None]
  - CHONDROPATHY [None]
